FAERS Safety Report 9218037 (Version 1)
Quarter: 2013Q2

REPORT INFORMATION
  Report Type: Spontaneous
  Country: US (occurrence: US)
  Receive Date: 20130408
  Receipt Date: 20130408
  Transmission Date: 20140414
  Serious: Yes (Other)
  Sender: FDA-Public Use
  Company Number: US-TARO-2013P1004166

PATIENT
  Age: 62 Year
  Sex: Male
  Weight: 122.47 kg

DRUGS (11)
  1. WARFARIN [Suspect]
     Route: 048
     Dates: start: 20111013, end: 20111019
  2. WARFARIN SODIUM [Suspect]
     Route: 048
     Dates: start: 20111020, end: 20111108
  3. WARFARIN SODIUM [Suspect]
     Route: 048
     Dates: start: 20111109, end: 20111110
  4. WARFARIN SODIUM [Suspect]
     Dates: start: 201112, end: 201206
  5. LISINOPRIL [Concomitant]
  6. UNSPECIFIED DIABETES MEDICATION [Concomitant]
  7. UNSPECIFIED DIABETES MEDICATION [Concomitant]
  8. UNSPECIFIED DIABETES MEDICATION [Concomitant]
  9. TYLENOL [Concomitant]
  10. KLONOPIN [Concomitant]
  11. TRAZODONE [Concomitant]

REACTIONS (5)
  - International normalised ratio abnormal [Recovered/Resolved]
  - Thrombosis [Recovered/Resolved]
  - Pain [Not Recovered/Not Resolved]
  - Sensory loss [Not Recovered/Not Resolved]
  - Mobility decreased [Not Recovered/Not Resolved]
